FAERS Safety Report 5506583-2 (Version None)
Quarter: 2007Q4

REPORT INFORMATION
  Report Type: 
  Country: None (occurrence: None)
  Receive Date: 20071101
  Receipt Date: 20071005
  Transmission Date: 20080405
  Serious: Yes (Other)
  Sender: FDA-Public Use
  Company Number: 60703

PATIENT
  Age: 76 Year
  Sex: Male

DRUGS (9)
  1. IBUPROFEN [Suspect]
     Indication: ANALGESIA
     Dosage: 600MG/TID/ORAL
     Route: 048
  2. ATENOLOL [Concomitant]
  3. CLONIDINE [Concomitant]
  4. LISINOPRIL [Concomitant]
  5. ASPIRIN [Concomitant]
  6. ASCORBIC ACID [Concomitant]
  7. LECITHIN [Concomitant]
  8. VITAMIN E [Concomitant]
  9. VITAMIN CAP [Concomitant]

REACTIONS (3)
  - AMNESIA [None]
  - CONFUSIONAL STATE [None]
  - PSEUDODEMENTIA [None]
